FAERS Safety Report 4830392-0 (Version None)
Quarter: 2005Q4

REPORT INFORMATION
  Report Type: 
  Country: None (occurrence: None)
  Receive Date: 20051114
  Receipt Date: 20051028
  Transmission Date: 20060501
  Serious: Yes (Other)
  Sender: FDA-Public Use
  Company Number: 2005-02259

PATIENT
  Age: 78 Year
  Sex: Male
  Weight: 90.7 kg

DRUGS (4)
  1. VELCADE [Suspect]
     Indication: MULTIPLE MYELOMA
     Dosage: 2.00 MG, IV BOLUS
     Route: 040
     Dates: start: 20050909, end: 20051025
  2. COREG [Concomitant]
  3. ZITHROMAX [Concomitant]
  4. ALLOPURINOL [Concomitant]

REACTIONS (4)
  - BLOOD PRESSURE INCREASED [None]
  - DISORIENTATION [None]
  - FATIGUE [None]
  - LETHARGY [None]
